FAERS Safety Report 21138168 (Version 1)
Quarter: 2022Q3

REPORT INFORMATION
  Report Type: Spontaneous
  Country: US (occurrence: US)
  Receive Date: 20220727
  Receipt Date: 20220727
  Transmission Date: 20221027
  Serious: Yes (Hospitalization, Other)
  Sender: FDA-Public Use
  Company Number: US-PFIZER INC-PV202200026723

PATIENT
  Age: 21 Year
  Sex: Female

DRUGS (4)
  1. RITUXIMAB [Suspect]
     Active Substance: RITUXIMAB
     Indication: Status epilepticus
     Dosage: UNK
  2. TOCILIZUMAB [Concomitant]
     Active Substance: TOCILIZUMAB
     Indication: Status epilepticus
     Dosage: UNK
  3. ANAKINRA [Concomitant]
     Active Substance: ANAKINRA
     Indication: Status epilepticus
     Dosage: UNK
  4. HUMAN IMMUNOGLOBULIN G [Concomitant]
     Active Substance: HUMAN IMMUNOGLOBULIN G
     Indication: Status epilepticus
     Dosage: UNK

REACTIONS (1)
  - Hypogammaglobulinaemia [Unknown]
